FAERS Safety Report 14242231 (Version 1)
Quarter: 2017Q4

REPORT INFORMATION
  Report Type: Spontaneous
  Country: US (occurrence: US)
  Receive Date: 20171130
  Receipt Date: 20171130
  Transmission Date: 20180321
  Serious: No
  Sender: FDA-Public Use
  Company Number: None

PATIENT
  Age: 61 Year
  Sex: Female

DRUGS (1)
  1. YUVAFEM [Suspect]
     Active Substance: ESTRADIOL HEMIHYDRATE

REACTIONS (5)
  - Bacterial vulvovaginitis [None]
  - Hair growth abnormal [None]
  - Drug ineffective [None]
  - Product substitution issue [None]
  - Hair colour changes [None]
